FAERS Safety Report 25545188 (Version 1)
Quarter: 2025Q3

REPORT INFORMATION
  Report Type: Spontaneous
  Country: TR (occurrence: TR)
  Receive Date: 20250711
  Receipt Date: 20250711
  Transmission Date: 20251021
  Serious: Yes (Other)
  Sender: AMGEN
  Company Number: TR-AMGEN-TURSP2025132606

PATIENT

DRUGS (7)
  1. BEVACIZUMAB [Suspect]
     Active Substance: BEVACIZUMAB
     Indication: Cervix cancer metastatic
     Route: 065
  2. BEVACIZUMAB [Suspect]
     Active Substance: BEVACIZUMAB
     Route: 065
  3. PLATINUM [Concomitant]
     Active Substance: PLATINUM
  4. PACLITAXEL [Concomitant]
     Active Substance: PACLITAXEL
  5. PACLITAXEL [Concomitant]
     Active Substance: PACLITAXEL
  6. CISPLATIN [Concomitant]
     Active Substance: CISPLATIN
  7. CISPLATIN [Concomitant]
     Active Substance: CISPLATIN

REACTIONS (1)
  - Cervix cancer metastatic [Unknown]
